FAERS Safety Report 21210113 (Version 1)
Quarter: 2022Q3

REPORT INFORMATION
  Report Type: Spontaneous
  Country: AR (occurrence: AR)
  Receive Date: 20220814
  Receipt Date: 20220814
  Transmission Date: 20221027
  Serious: Yes (Life-Threatening, Hospitalization, Other)
  Sender: FDA-Public Use
  Company Number: AR-SUN PHARMACEUTICAL INDUSTRIES LTD-2022R1-348400

PATIENT
  Age: 72 Year
  Sex: Male

DRUGS (3)
  1. DEXAMETHASONE [Suspect]
     Active Substance: DEXAMETHASONE
     Indication: Plasma cell myeloma
     Dosage: 40 MILLIGRAM, WEEKLY
     Route: 065
     Dates: start: 20200205, end: 20210316
  2. BORTEZOMIB [Suspect]
     Active Substance: BORTEZOMIB
     Indication: Plasma cell myeloma
     Dosage: UNK,1.3 MG/M2 DAYS 1, 8, 15, AND 22
     Route: 065
     Dates: start: 20200205, end: 20210316
  3. SELINEXOR [Suspect]
     Active Substance: SELINEXOR
     Indication: Plasma cell myeloma
     Dosage: 80 MILLIGRAM, WEEKLY
     Route: 048
     Dates: start: 20200205, end: 20210316

REACTIONS (3)
  - Thrombocytopenia [Unknown]
  - Nausea [Unknown]
  - Disease progression [Unknown]
